FAERS Safety Report 15316603 (Version 1)
Quarter: 2018Q3

REPORT INFORMATION
  Report Type: Spontaneous
  Country: BE (occurrence: BE)
  Receive Date: 20180824
  Receipt Date: 20180824
  Transmission Date: 20181010
  Serious: Yes (Other)
  Sender: FDA-Public Use
  Company Number: BE-ASTRAZENECA-2018SF07403

PATIENT
  Age: 35 Year
  Sex: Male
  Weight: 98 kg

DRUGS (1)
  1. SYMBICORT [Suspect]
     Active Substance: BUDESONIDE\FORMOTEROL FUMARATE DIHYDRATE
     Indication: ASTHMA
     Dosage: 320/9 MCG, 1 DF INTERMITTENT, ONE TO TWO DOSES PER DAY ON DEMAND INTERMITTENT
     Route: 055

REACTIONS (5)
  - Muscle fatigue [Recovered/Resolved]
  - Sleep disorder [Recovered/Resolved]
  - Vertigo [Recovered/Resolved]
  - Malaise [Recovered/Resolved]
  - Fatigue [Recovered/Resolved]

NARRATIVE: CASE EVENT DATE: 20180808
